FAERS Safety Report 19032826 (Version 7)
Quarter: 2022Q1

REPORT INFORMATION
  Report Type: Report from Study
  Country: US (occurrence: US)
  Receive Date: 20210319
  Receipt Date: 20220216
  Transmission Date: 20220423
  Serious: Yes (Hospitalization, Other)
  Sender: FDA-Public Use
  Company Number: US-OTSUKA-2021_003802

PATIENT
  Age: 76 Year
  Sex: Male

DRUGS (3)
  1. CEDAZURIDINE\DECITABINE [Suspect]
     Active Substance: CEDAZURIDINE\DECITABINE
     Indication: Chronic myelomonocytic leukaemia
     Dosage: 1 DF, QD ON DAYS 1-5 OF EACH 28 DAY CYCLE
     Route: 048
     Dates: start: 20210120
  2. CEDAZURIDINE\DECITABINE [Suspect]
     Active Substance: CEDAZURIDINE\DECITABINE
     Dosage: 1 DF, QD ON DAYS 1-5 OF EACH 28 DAY CYCLE
     Route: 048
  3. METOPROLOL SUCCINATE [Concomitant]
     Active Substance: METOPROLOL SUCCINATE
     Indication: Product used for unknown indication
     Dosage: 25 MG, BID
     Route: 065

REACTIONS (19)
  - Full blood count abnormal [Not Recovered/Not Resolved]
  - Cardiac failure congestive [Recovered/Resolved]
  - Atrial fibrillation [Unknown]
  - Urinary tract infection [Unknown]
  - Deafness [Unknown]
  - White blood cell disorder [Recovering/Resolving]
  - Chills [Unknown]
  - Biopsy bone marrow [Unknown]
  - Hypotension [Not Recovered/Not Resolved]
  - Pain [Unknown]
  - Skin lesion [Unknown]
  - Fatigue [Unknown]
  - Headache [Unknown]
  - Nausea [Unknown]
  - Pyrexia [Unknown]
  - Fatigue [Unknown]
  - Dizziness [Unknown]
  - Platelet count decreased [Recovering/Resolving]
  - Haemoglobin decreased [Recovering/Resolving]

NARRATIVE: CASE EVENT DATE: 20210430
